FAERS Safety Report 23289068 (Version 1)
Quarter: 2023Q4

REPORT INFORMATION
  Report Type: Spontaneous
  Country: US (occurrence: None)
  Receive Date: 20231212
  Receipt Date: 20231212
  Transmission Date: 20240110
  Serious: No
  Sender: FDA-Public Use
  Company Number: None

PATIENT
  Sex: Female

DRUGS (2)
  1. SIMPONI [Suspect]
     Active Substance: GOLIMUMAB
     Indication: Inflammatory bowel disease
     Dosage: 100MG EVERY 4 WEEKS SQ
     Route: 058
     Dates: start: 201910
  2. SIMPONI [Suspect]
     Active Substance: GOLIMUMAB
     Indication: Psoriasis

REACTIONS (1)
  - Drug ineffective [None]
